FAERS Safety Report 5735917-9 (Version None)
Quarter: 2008Q2

REPORT INFORMATION
  Report Type: 
  Country: None (occurrence: None)
  Receive Date: 20080509
  Receipt Date: 20080509
  Transmission Date: 20081010
  Serious: Yes (Hospitalization)
  Sender: FDA-Public Use
  Company Number: None

PATIENT
  Age: 55 Year
  Sex: Female
  Weight: 89.8122 kg

DRUGS (1)
  1. NIACIN [Suspect]
     Indication: HIGH DENSITY LIPOPROTEIN ABNORMAL
     Dosage: 250 MG 1 PER DAY PO
     Route: 048
     Dates: start: 20080424, end: 20080430

REACTIONS (1)
  - FATIGUE [None]
